FAERS Safety Report 7402761-6 (Version None)
Quarter: 2011Q2

REPORT INFORMATION
  Report Type: 
  Country: None (occurrence: None)
  Receive Date: 20110408
  Receipt Date: 20110330
  Transmission Date: 20111010
  Serious: Yes (Other)
  Sender: FDA-Public Use
  Company Number: US-ROCHE-768556

PATIENT
  Sex: Female
  Weight: 86.2 kg

DRUGS (4)
  1. FOLIC ACID [Concomitant]
  2. ACTEMRA [Suspect]
     Indication: RHEUMATOID ARTHRITIS
     Dosage: FORM: INFUSION
     Route: 042
     Dates: start: 20110222, end: 20110222
  3. ACTEMRA [Suspect]
     Route: 042
     Dates: start: 20110329
  4. METHOTREXATE [Concomitant]
     Indication: RHEUMATOID ARTHRITIS
     Dosage: 7 TABLETS WEEKLY

REACTIONS (5)
  - SWELLING [None]
  - LUNG NEOPLASM [None]
  - DYSPNOEA [None]
  - EAR PAIN [None]
  - BACK PAIN [None]
